FAERS Safety Report 24902486 (Version 1)
Quarter: 2025Q1

REPORT INFORMATION
  Report Type: Spontaneous
  Country: US (occurrence: US)
  Receive Date: 20250130
  Receipt Date: 20250130
  Transmission Date: 20250408
  Serious: No
  Sender: RANBAXY
  Company Number: US-SUN PHARMACEUTICAL INDUSTRIES LTD-2024R1-483533

PATIENT
  Sex: Male

DRUGS (19)
  1. ALBUTEROL [Suspect]
     Active Substance: ALBUTEROL
     Indication: Product used for unknown indication
     Route: 065
  2. DUPILUMAB [Suspect]
     Active Substance: DUPILUMAB
     Indication: Asthma
     Route: 058
     Dates: start: 20240229
  3. ACETAMINOPHEN [Concomitant]
     Active Substance: ACETAMINOPHEN
     Indication: Product used for unknown indication
     Route: 065
  4. BUDESONIDE [Concomitant]
     Active Substance: BUDESONIDE
     Indication: Product used for unknown indication
     Route: 065
  5. CLOTRIM AZOLE [Concomitant]
     Indication: Product used for unknown indication
     Route: 065
  6. COENZY ME Q10 [Concomitant]
     Indication: Product used for unknown indication
     Route: 065
  7. DILTIAZEM HYDROCHLORIDE [Concomitant]
     Active Substance: DILTIAZEM HYDROCHLORIDE
     Indication: Product used for unknown indication
     Route: 065
  8. BIFIDOBACTERIUM BIFIDUM [Concomitant]
     Active Substance: BIFIDOBACTERIUM BIFIDUM
     Indication: Product used for unknown indication
     Route: 065
  9. BIFIDOBACTERIUM ANIMALIS LACTIS [Concomitant]
     Active Substance: BIFIDOBACTERIUM ANIMALIS LACTIS
     Indication: Product used for unknown indication
     Route: 065
  10. LACTIPLA M [Concomitant]
     Indication: Product used for unknown indication
     Route: 065
  11. LACTOBACILLUS ACIDOPHILUS [Concomitant]
     Active Substance: LACTOBACILLUS ACIDOPHILUS
     Indication: Product used for unknown indication
     Route: 065
  12. LACTOBACILLUS LA CTOBACILLU S BULG ARICUS [Concomitant]
     Indication: Product used for unknown indication
     Route: 065
  13. LACTOBACILLUS LA CTOBACILLU S BULG ARICUS [Concomitant]
     Indication: Product used for unknown indication
  14. LACTOBACILLUS CASEI [Concomitant]
     Active Substance: LACTOBACILLUS CASEI
     Indication: Product used for unknown indication
     Route: 065
  15. LACTOBACILLUS  PAR ACASEI [Concomitant]
     Indication: Product used for unknown indication
  16. LACTOBACILLUS RHA NOSUS [Concomitant]
     Indication: Product used for unknown indication
     Route: 065
  17. LACTOBA CILLUS ARI US [Concomitant]
     Indication: Product used for unknown indication
     Route: 065
  18. LACTIPLANTIBACILLUS  LACTOBACILLUS S LLGARICUS [Concomitant]
     Indication: Product used for unknown indication
     Route: 065
  19. LACTOBACILLUS PARA CASEI [Concomitant]
     Indication: Product used for unknown indication
     Route: 065

REACTIONS (1)
  - Tremor [Unknown]
